FAERS Safety Report 23977764 (Version 1)
Quarter: 2024Q2

REPORT INFORMATION
  Report Type: Spontaneous
  Country: GB (occurrence: GB)
  Receive Date: 20240614
  Receipt Date: 20240614
  Transmission Date: 20240716
  Serious: Yes (Disabling, Other)
  Sender: FDA-Public Use
  Company Number: None

PATIENT
  Age: 33 Year
  Sex: Female
  Weight: 78 kg

DRUGS (3)
  1. TOPIRAMATE [Suspect]
     Active Substance: TOPIRAMATE
     Indication: Product used for unknown indication
     Dosage: 2 TABLETS
     Route: 065
     Dates: start: 20240430, end: 20240509
  2. SUMATRIPTAN [Concomitant]
     Active Substance: SUMATRIPTAN
     Indication: Migraine
     Dosage: 1 SPRAY INTO NOSTRIL AT ONSET OF MIGRAINE, USE A 2ND SPRAY IF MIGRAINE RECURS WITHIN 2 HRS
     Route: 065
     Dates: start: 20240429
  3. TOPIRAMATE [Concomitant]
     Active Substance: TOPIRAMATE
     Indication: Product used for unknown indication
     Dosage: 1 TABLET EACH NIGHT FOR 1 WEEK, INCREASE TO 2 TABLETS AT NIGHT FOR 1 WEEK THEN REVIEW
     Route: 065
     Dates: start: 20240429, end: 20240514

REACTIONS (2)
  - Angle closure glaucoma [Recovering/Resolving]
  - Blindness [Unknown]

NARRATIVE: CASE EVENT DATE: 20240509
